FAERS Safety Report 4701068-5 (Version None)
Quarter: 2005Q2

REPORT INFORMATION
  Report Type: 
  Country: None (occurrence: None)
  Receive Date: 20050624
  Receipt Date: 20041012
  Transmission Date: 20051028
  Serious: Yes (Life-Threatening)
  Sender: FDA-Public Use
  Company Number: 383238

PATIENT
  Age: 57 Year
  Sex: Female
  Weight: 64 kg

DRUGS (1)
  1. XELODA [Suspect]
     Indication: BREAST CANCER METASTATIC
     Dosage: 1000 MG 2 PER DAY ORAL
     Route: 048
     Dates: start: 20040927, end: 20041008

REACTIONS (1)
  - VENTRICULAR TACHYCARDIA [None]
